FAERS Safety Report 12456862 (Version 1)
Quarter: 2016Q2

REPORT INFORMATION
  Report Type: Report from Study
  Country: US (occurrence: US)
  Receive Date: 20160610
  Receipt Date: 20160610
  Transmission Date: 20160815
  Serious: Yes (Other)
  Sender: FDA-Public Use
  Company Number: US-BAXALTA-2016BLT003923

PATIENT
  Sex: Female

DRUGS (1)
  1. GAMMAGARD LIQUID [Suspect]
     Active Substance: HUMAN IMMUNOGLOBULIN G
     Indication: PRIMARY IMMUNODEFICIENCY SYNDROME
     Dosage: UNK
     Route: 042

REACTIONS (10)
  - Precancerous cells present [Unknown]
  - Bladder disorder [Unknown]
  - Food allergy [Unknown]
  - Poor venous access [Unknown]
  - Abdominal distension [Unknown]
  - Swollen tongue [Unknown]
  - Endometriosis [Unknown]
  - Oropharyngeal pain [Unknown]
  - Fallopian tube disorder [Unknown]
  - Migraine [Unknown]
